FAERS Safety Report 12183465 (Version 1)
Quarter: 2016Q1

REPORT INFORMATION
  Report Type: Spontaneous
  Country: US (occurrence: None)
  Receive Date: 20160315
  Receipt Date: 20160315
  Transmission Date: 20160526
  Serious: Yes (Hospitalization, Disabling)
  Sender: FDA-Public Use
  Company Number: None

PATIENT
  Age: 34 Year
  Sex: Male
  Weight: 68.04 kg

DRUGS (6)
  1. BENZTROPINE 1MG [Suspect]
     Active Substance: BENZTROPINE
     Indication: SCHIZOPHRENIA
     Dosage: 1 PILL BREAK MOUTH
     Route: 048
     Dates: start: 20160203
  2. INVEGA [Concomitant]
     Active Substance: PALIPERIDONE
  3. RISPERIDONE. [Concomitant]
     Active Substance: RISPERIDONE
  4. RISPERDAL [Concomitant]
     Active Substance: RISPERIDONE
  5. SEROQUEL [Concomitant]
     Active Substance: QUETIAPINE FUMARATE
  6. ABILIFY [Concomitant]
     Active Substance: ARIPIPRAZOLE

REACTIONS (6)
  - Seizure [None]
  - Dysarthria [None]
  - Transient ischaemic attack [None]
  - Fall [None]
  - Choking [None]
  - Feeling hot [None]

NARRATIVE: CASE EVENT DATE: 20160216
